FAERS Safety Report 6236721-8 (Version None)
Quarter: 2009Q2

REPORT INFORMATION
  Report Type: 
  Country: None (occurrence: None)
  Receive Date: 20090619
  Receipt Date: 20090608
  Transmission Date: 20091009
  Serious: Yes (Disabling, Other)
  Sender: FDA-Public Use
  Company Number: PHHY2008DE08329

PATIENT
  Sex: Female
  Weight: 85.4 kg

DRUGS (10)
  1. FEMARA [Suspect]
     Indication: BREAST CANCER
     Dosage: 2.5 MG, QD
     Dates: start: 20070327
  2. FEMARA [Suspect]
     Dosage: UNK
  3. CEFASEL [Concomitant]
     Dosage: 300 UG, UNK
     Dates: start: 20061001
  4. ATENOLOL [Concomitant]
     Dosage: 25 MG, UNK
  5. SIMVASTATIN [Concomitant]
  6. ISCADOR [Concomitant]
     Dosage: THREE IN A WEEK
     Dates: start: 20061001
  7. TELMISARTAN [Concomitant]
     Dosage: 300 UG, UNK
     Dates: start: 20061104
  8. SELEN [Concomitant]
     Dosage: 300 UG, UNK
     Dates: start: 20061104
  9. OEKOLP [Concomitant]
  10. ZOMETA [Concomitant]
     Dosage: 4 MG EVERY 6 MONTHS
     Dates: start: 20090519

REACTIONS (5)
  - DEMENTIA [None]
  - FALL [None]
  - GENERAL PHYSICAL HEALTH DETERIORATION [None]
  - LEUKOENCEPHALOPATHY [None]
  - OPEN FRACTURE [None]
